FAERS Safety Report 9384004 (Version 3)
Quarter: 2013Q3

REPORT INFORMATION
  Report Type: Spontaneous
  Country: US (occurrence: US)
  Receive Date: 20130705
  Receipt Date: 20130726
  Transmission Date: 20140515
  Serious: Yes (Hospitalization, Other)
  Sender: FDA-Public Use
  Company Number: US-AMGEN-USASP2013046594

PATIENT
  Age: 65 Year
  Sex: Male
  Weight: 85 kg

DRUGS (10)
  1. XGEVA [Suspect]
     Indication: METASTASES TO BONE
     Dosage: 120 MG, UNK
     Route: 058
     Dates: start: 20130627
  2. COUMADIN /00014802/ [Suspect]
     Indication: PULMONARY EMBOLISM
     Dosage: 5 MG, QD
     Route: 048
     Dates: start: 20130423
  3. WARFARIN [Concomitant]
  4. ADVAIR [Concomitant]
     Indication: CHRONIC OBSTRUCTIVE PULMONARY DISEASE
     Dosage: UNK UNK, BID
     Route: 045
  5. LOVASTATIN [Concomitant]
     Indication: BLOOD CHOLESTEROL
     Dosage: 20 MG, UNK
  6. ATROVENT HFA [Concomitant]
     Indication: CHRONIC OBSTRUCTIVE PULMONARY DISEASE
     Dosage: UNK UNK, BID
     Route: 045
  7. CARBOPLATIN [Concomitant]
     Dosage: 503 MG, UNK
     Dates: start: 20130606
  8. ALIMTA [Concomitant]
     Dosage: 1045 MG, UNK
  9. FOLIC ACID [Concomitant]
  10. VITAMIN B12                        /00056201/ [Concomitant]

REACTIONS (12)
  - Musculoskeletal pain [Recovered/Resolved]
  - Pain in extremity [Recovered/Resolved]
  - International normalised ratio increased [Unknown]
  - Abdominal distension [Unknown]
  - Abdominal pain [Unknown]
  - Pneumonia [Unknown]
  - Renal failure [Unknown]
  - Anaemia [Unknown]
  - Thrombocytopenia [Unknown]
  - Cardiac failure congestive [Unknown]
  - Coagulopathy [Unknown]
  - Haematuria [Unknown]
